FAERS Safety Report 8318772-2 (Version None)
Quarter: 2012Q2

REPORT INFORMATION
  Report Type: 
  Country: None (occurrence: None)
  Receive Date: 20120427
  Receipt Date: 20120418
  Transmission Date: 20120825
  Serious: Yes (Other)
  Sender: FDA-Public Use
  Company Number: CA-JNJFOC-20120408621

PATIENT
  Sex: Male
  Weight: 116 kg

DRUGS (2)
  1. REMICADE [Suspect]
     Indication: ANKYLOSING SPONDYLITIS
     Dosage: 39TH INFUSION
     Route: 042
     Dates: start: 20120418
  2. REMICADE [Suspect]
     Dosage: 39 INFUSIONS TOTAL
     Route: 042

REACTIONS (1)
  - PERIORBITAL OEDEMA [None]
